FAERS Safety Report 4521915-X (Version None)
Quarter: 2004Q4

REPORT INFORMATION
  Report Type: 
  Country: None (occurrence: None)
  Receive Date: 20041207
  Receipt Date: 20041207
  Transmission Date: 20050328
  Serious: Yes (Life-Threatening, Hospitalization)
  Sender: FDA-Public Use
  Company Number: None

PATIENT
  Age: 24 Year
  Sex: Female
  Weight: 52.1637 kg

DRUGS (1)
  1. LOESTRIN FE 1/20 [Suspect]
     Indication: CONTRACEPTION
     Dosage: 1 TAB PO DAILY
     Route: 048

REACTIONS (6)
  - AORTIC VALVE DISEASE [None]
  - BLUE TOE SYNDROME [None]
  - CATHETER RELATED COMPLICATION [None]
  - HORNER'S SYNDROME [None]
  - PERIPHERAL EMBOLISM [None]
  - THROMBOSIS [None]
